FAERS Safety Report 22158003 (Version 1)
Quarter: 2023Q1

REPORT INFORMATION
  Report Type: Spontaneous
  Country: US (occurrence: US)
  Receive Date: 20230330
  Receipt Date: 20230330
  Transmission Date: 20230417
  Serious: Yes (Other)
  Sender: FDA-Public Use
  Company Number: US-Teikoku Pharma USA-TPU2023-00161

PATIENT
  Sex: Female
  Weight: 59.928 kg

DRUGS (1)
  1. LIDODERM [Suspect]
     Active Substance: LIDOCAINE
     Indication: Spinal column injury
     Dosage: NEVER USED MORE THAN 2 PATCHES AT ONCE
     Route: 061
     Dates: start: 1993

REACTIONS (1)
  - Dementia Alzheimer^s type [Not Recovered/Not Resolved]
